FAERS Safety Report 9678700 (Version 1)
Quarter: 2013Q4

REPORT INFORMATION
  Report Type: Spontaneous
  Country: NL (occurrence: NL)
  Receive Date: 20131108
  Receipt Date: 20131108
  Transmission Date: 20140711
  Serious: Yes (Hospitalization)
  Sender: FDA-Public Use
  Company Number: NL-PFIZER INC-2013312618

PATIENT
  Age: 41 Year
  Sex: Female

DRUGS (3)
  1. DOXAZOSIN MESILATE [Suspect]
     Indication: ORTHOSTATIC HYPOTENSION
     Dosage: 4 MG, (2 DD)
     Route: 048
  2. METOPROLOL TARTRATE [Suspect]
     Indication: ORTHOSTATIC HYPOTENSION
     Dosage: 50 MG, (2 DD)
     Route: 048
  3. VERAPAMIL [Suspect]
     Indication: ORTHOSTATIC HYPOTENSION
     Dosage: 120 MG, UNK
     Route: 048

REACTIONS (3)
  - Circulatory collapse [Recovered/Resolved]
  - Blood pressure inadequately controlled [Recovered/Resolved]
  - Therapeutic response decreased [Recovered/Resolved]
